FAERS Safety Report 4412373-4 (Version None)
Quarter: 2004Q2

REPORT INFORMATION
  Report Type: 
  Country: None (occurrence: None)
  Receive Date: 20040630
  Receipt Date: 20040305
  Transmission Date: 20050107
  Serious: No
  Sender: FDA-Public Use
  Company Number: 04P-163-0252519-00

PATIENT
  Age: 70 Year
  Sex: Female
  Weight: 55.3388 kg

DRUGS (12)
  1. HUMIRA [Suspect]
     Indication: RHEUMATOID ARTHRITIS
     Dosage: 40 MG, 1 IN 2 WK, SUBCUTANEOUS
     Route: 058
     Dates: start: 20040212
  2. PROPACET 100 [Concomitant]
  3. DILTIAZEM HYDROCHLORIDE [Concomitant]
  4. OMEPRAZOLE [Concomitant]
  5. PRAVASTATIN SODIUM [Concomitant]
  6. GLUCOPHAGE [Concomitant]
  7. METHOTREXATE SODIUM [Concomitant]
  8. FOLIC ACID [Concomitant]
  9. CELECOXIB [Concomitant]
  10. ALBUTEROL SULFATE [Concomitant]
  11. IRON WITH VITAMIN C [Concomitant]
  12. PROVELLA-14 [Concomitant]

REACTIONS (2)
  - ASTHENIA [None]
  - DIZZINESS [None]
